FAERS Safety Report 6734198-7 (Version None)
Quarter: 2010Q2

REPORT INFORMATION
  Report Type: 
  Country: None (occurrence: None)
  Receive Date: 20100518
  Receipt Date: 20100514
  Transmission Date: 20101027
  Serious: Yes (Other)
  Sender: FDA-Public Use
  Company Number: 20100010USST

PATIENT
  Age: 58 Year
  Sex: Male

DRUGS (4)
  1. PROCARBAZINE CAPSULES [Suspect]
     Indication: LYMPHOMA
  2. VINCRISTINE [Suspect]
     Indication: LYMPHOMA
  3. PREDNISONE [Suspect]
     Indication: LYMPHOMA
  4. MUSTARGEN [Suspect]
     Indication: LYMPHOMA

REACTIONS (2)
  - ANOSMIA [None]
  - NASAL SEPTUM DEVIATION [None]
